FAERS Safety Report 9205264 (Version 1)
Quarter: 2013Q2

REPORT INFORMATION
  Report Type: Spontaneous
  Country: US (occurrence: US)
  Receive Date: 20130402
  Receipt Date: 20130402
  Transmission Date: 20140414
  Serious: Yes (Other)
  Sender: FDA-Public Use
  Company Number: CHPA2013US005621

PATIENT
  Age: 82 Year
  Sex: Male

DRUGS (2)
  1. EXCEDRIN UNKNOWN [Suspect]
     Indication: HEADACHE
     Dosage: 1 UNK, BID
     Route: 048
  2. EAR DROPS RX [Concomitant]
     Dosage: UNK

REACTIONS (8)
  - Urinary tract infection [Unknown]
  - Movement disorder [Unknown]
  - Dizziness [Unknown]
  - Pain [Unknown]
  - Road traffic accident [Unknown]
  - Fall [Unknown]
  - Balance disorder [Unknown]
  - Underdose [Unknown]
